FAERS Safety Report 23273502 (Version 1)
Quarter: 2023Q4

REPORT INFORMATION
  Report Type: Report from Study
  Country: US (occurrence: US)
  Receive Date: 20231207
  Receipt Date: 20231207
  Transmission Date: 20240109
  Serious: Yes (Hospitalization, Other)
  Sender: FDA-Public Use
  Company Number: US-002147023-NVSC2021US009272

PATIENT
  Sex: Female
  Weight: 54.422 kg

DRUGS (5)
  1. TREPROSTINIL [Suspect]
     Active Substance: TREPROSTINIL
     Indication: Pulmonary arterial hypertension
     Dosage: 170 NG/KG/MIN, CONT
     Route: 042
     Dates: start: 20190418
  2. TREPROSTINIL [Suspect]
     Active Substance: TREPROSTINIL
     Dosage: 170 NG/KG/MIN, CONT
     Route: 065
  3. TREPROSTINIL [Suspect]
     Active Substance: TREPROSTINIL
     Dosage: 170 NG/KG/MIN, CONT
     Route: 042
     Dates: start: 20190418
  4. COUMADIN [Concomitant]
     Active Substance: WARFARIN SODIUM
     Indication: Product used for unknown indication
     Dosage: UNK
     Route: 065
  5. TRACLEER [Concomitant]
     Active Substance: BOSENTAN
     Indication: Product used for unknown indication
     Dosage: UNK
     Route: 065

REACTIONS (4)
  - Pulmonary arterial hypertension [Unknown]
  - Condition aggravated [Unknown]
  - Feeling abnormal [Unknown]
  - Dizziness [Unknown]
